FAERS Safety Report 22645436 (Version 1)
Quarter: 2023Q2

REPORT INFORMATION
  Report Type: Spontaneous
  Country: US (occurrence: None)
  Receive Date: 20230623
  Receipt Date: 20230623
  Transmission Date: 20230722
  Serious: No
  Sender: FDA-Public Use
  Company Number: None

PATIENT
  Age: 60 Year
  Sex: Female
  Weight: 58.51 kg

DRUGS (25)
  1. KISQALI [Suspect]
     Active Substance: RIBOCICLIB
     Indication: Breast cancer female
     Dosage: FREQUENCY : MONTHLY;?
     Route: 048
  2. ACYCLOVIR [Concomitant]
     Active Substance: ACYCLOVIR
  3. ALENDRONATE [Concomitant]
     Active Substance: ALENDRONATE SODIUM
  4. AZELASTINE [Concomitant]
     Active Substance: AZELASTINE
  5. CALCIUM CARBONATE [Concomitant]
     Active Substance: CALCIUM CARBONATE
  6. CETIRIZINE [Concomitant]
     Active Substance: CETIRIZINE HYDROCHLORIDE
  7. CYMBALTA [Concomitant]
     Active Substance: DULOXETINE HYDROCHLORIDE
  8. DARZALEX FASPRO [Concomitant]
     Active Substance: DARATUMUMAB\HYALURONIDASE-FIHJ
  9. DEXAMETHASONE [Concomitant]
     Active Substance: DEXAMETHASONE
  10. DOCUSATE SODIUM [Concomitant]
     Active Substance: DOCUSATE SODIUM
  11. FASLODEX [Concomitant]
     Active Substance: FULVESTRANT
  12. LIDOCAINE [Concomitant]
     Active Substance: LIDOCAINE
  13. LION^S MANE MUSHROOM [Concomitant]
  14. LYRICA [Concomitant]
     Active Substance: PREGABALIN
  15. VITAMINS [Concomitant]
     Active Substance: VITAMINS
  16. OMEPRAZOLE [Concomitant]
     Active Substance: OMEPRAZOLE
  17. PEPCID [Concomitant]
     Active Substance: FAMOTIDINE
  18. PERCOCET [Concomitant]
     Active Substance: ACETAMINOPHEN\OXYCODONE HYDROCHLORIDE
  19. TURKEY TAIL [Concomitant]
  20. VALIUM [Concomitant]
     Active Substance: DIAZEPAM
  21. VELCADE [Concomitant]
     Active Substance: BORTEZOMIB
  22. VITAMIN C [Concomitant]
     Active Substance: ASCORBIC ACID
  23. VITAMIN D2 [Concomitant]
     Active Substance: ERGOCALCIFEROL
  24. XGEVA [Concomitant]
     Active Substance: DENOSUMAB
  25. ZYRTEC [Concomitant]
     Active Substance: CETIRIZINE HYDROCHLORIDE

REACTIONS (2)
  - Joint swelling [None]
  - Tumour marker increased [None]
